FAERS Safety Report 13430939 (Version 1)
Quarter: 2017Q2

REPORT INFORMATION
  Report Type: Spontaneous
  Country: TH (occurrence: TH)
  Receive Date: 20170412
  Receipt Date: 20170412
  Transmission Date: 20170830
  Serious: No
  Sender: FDA-Public Use
  Company Number: TH-ELI_LILLY_AND_COMPANY-TH201704002984

PATIENT
  Sex: Female

DRUGS (1)
  1. ZYPREXA [Suspect]
     Active Substance: OLANZAPINE
     Indication: PRODUCT USED FOR UNKNOWN INDICATION
     Dosage: 5 MG, QD
     Route: 065
     Dates: start: 201703

REACTIONS (6)
  - Haematocrit decreased [Unknown]
  - Hypoaesthesia [Not Recovered/Not Resolved]
  - Palpitations [Recovered/Resolved]
  - Haemoglobin decreased [Unknown]
  - Somnolence [Recovered/Resolved]
  - Peripheral swelling [Recovered/Resolved]
